FAERS Safety Report 8440971 (Version 2)
Quarter: 2012Q4

REPORT INFORMATION
  Report Type: 
  Country: US (occurrence: US)
  Receive Date: 20120305
  Receipt Date: 20121005
  Transmission Date: 20130627
  Serious: Yes (Hospitalization, Disabling, Other)
  Sender: FDA-Public Use
  Company Number: US-ELI_LILLY_AND_COMPANY-US200910007344

PATIENT
  Age: 43 Year
  Sex: Male

DRUGS (5)
  1. ZYPREXA [Suspect]
     Indication: BIPOLAR DISORDER
     Dosage: 10 mg, each evening
     Route: 048
     Dates: start: 200311
  2. PROZAC [Concomitant]
  3. PROTONIX [Concomitant]
  4. OSCAL D [Concomitant]
  5. METOPROLOL [Concomitant]

REACTIONS (26)
  - Sepsis [Recovered/Resolved]
  - Syncope [Recovered/Resolved]
  - Renal failure [Unknown]
  - Hypoglycaemia [Recovered/Resolved]
  - Hypotension [Recovered/Resolved]
  - Diabetic neuropathy [Unknown]
  - Dehydration [Recovered/Resolved]
  - Dyslipidaemia [Unknown]
  - Deep vein thrombosis [Recovered/Resolved]
  - Diabetic ketoacidosis [Recovered/Resolved]
  - Diabetes mellitus [Unknown]
  - Diabetic ketoacidosis [Recovered/Resolved]
  - Pancreatitis acute [Unknown]
  - Haemoglobin increased [Recovered/Resolved]
  - Leukocytosis [Recovered/Resolved]
  - Cellulitis [Unknown]
  - Myopia [Unknown]
  - Urinary tract infection [Unknown]
  - Anaemia [Recovering/Resolving]
  - Arteriosclerosis coronary artery [Unknown]
  - Hepatic steatosis [Unknown]
  - Essential hypertension [Unknown]
  - Thrombocytopenia [Recovered/Resolved]
  - Blood alkaline phosphatase increased [Recovered/Resolved]
  - Aspartate aminotransferase increased [Recovered/Resolved]
  - Hyperglycaemia [Unknown]
